FAERS Safety Report 11616010 (Version 1)
Quarter: 2015Q4

REPORT INFORMATION
  Report Type: Spontaneous
  Country: US (occurrence: US)
  Receive Date: 20151009
  Receipt Date: 20151009
  Transmission Date: 20160304
  Serious: No
  Sender: FDA-Public Use
  Company Number: US-BAYER-2015-440487

PATIENT
  Age: 10 Year
  Sex: Male
  Weight: 29.2 kg

DRUGS (1)
  1. MIRALAX [Suspect]
     Active Substance: POLYETHYLENE GLYCOL 3350
     Indication: CONSTIPATION
     Dosage: HALF DOSE, BID WITH 5-8 ONCES OF WATER
     Route: 048
     Dates: end: 20151007

REACTIONS (3)
  - Nausea [Recovered/Resolved]
  - Muscle spasms [Recovered/Resolved]
  - Product use issue [Unknown]

NARRATIVE: CASE EVENT DATE: 20151003
